FAERS Safety Report 13795381 (Version 2)
Quarter: 2017Q3

REPORT INFORMATION
  Report Type: Spontaneous
  Country: US (occurrence: US)
  Receive Date: 20170726
  Receipt Date: 20170807
  Transmission Date: 20171127
  Serious: No
  Sender: FDA-Public Use
  Company Number: US-LUNDBECK-DKLU2034206

PATIENT
  Age: 46 Year
  Sex: Male

DRUGS (4)
  1. NORTHERA [Suspect]
     Active Substance: DROXIDOPA
     Indication: ORTHOSTATIC HYPOTENSION
     Dosage: SCHEDULE A; TITRATING
     Route: 048
     Dates: start: 20170714
  2. NORTHERA [Suspect]
     Active Substance: DROXIDOPA
     Indication: AUTONOMIC NEUROPATHY
     Dosage: SCHEDULE A; TITRATING
     Route: 048
     Dates: start: 20170713
  3. NORTHERA [Suspect]
     Active Substance: DROXIDOPA
     Indication: SYNCOPE
  4. NORTHERA [Suspect]
     Active Substance: DROXIDOPA
     Indication: HYPOTENSION
     Dosage: SCHEDULE A; TITRATING
     Route: 048
     Dates: start: 20170713

REACTIONS (5)
  - Dizziness [Unknown]
  - Rash [Unknown]
  - Pharyngeal oedema [Unknown]
  - Hyperhidrosis [Unknown]
  - Urticaria [Unknown]

NARRATIVE: CASE EVENT DATE: 20170713
